FAERS Safety Report 20591598 (Version 1)
Quarter: 2022Q1

REPORT INFORMATION
  Report Type: Spontaneous
  Country: DK (occurrence: IS)
  Receive Date: 20220314
  Receipt Date: 20220314
  Transmission Date: 20220423
  Serious: Yes (Other)
  Sender: FDA-Public Use
  Company Number: DK-TAKEDA-2022TUS016459

PATIENT

DRUGS (1)
  1. LISDEXAMFETAMINE DIMESYLATE [Suspect]
     Active Substance: LISDEXAMFETAMINE DIMESYLATE
     Indication: Product used for unknown indication
     Dosage: 72 MILLIGRAM
     Route: 065

REACTIONS (4)
  - Psychomotor retardation [Unknown]
  - Feeling abnormal [Unknown]
  - Thinking abnormal [Unknown]
  - Off label use [Unknown]
